FAERS Safety Report 7514693-3 (Version None)
Quarter: 2011Q2

REPORT INFORMATION
  Report Type: 
  Country: None (occurrence: None)
  Receive Date: 20110601
  Receipt Date: 20110518
  Transmission Date: 20111010
  Serious: Yes (Hospitalization, Other)
  Sender: FDA-Public Use
  Company Number: DE-RANBAXY-2009RR-25614

PATIENT
  Age: 66 Year
  Sex: Male
  Weight: 80 kg

DRUGS (4)
  1. AQUAPHOR [Suspect]
     Dosage: 200 MG, SINGLE
     Route: 048
     Dates: start: 20070319
  2. TRAMADOL HYDROCHLORIDE [Suspect]
     Dosage: UNK
     Route: 042
     Dates: start: 20070318, end: 20070326
  3. FUROSEMIDE [Suspect]
     Dosage: UNK MG, UNK
     Route: 042
     Dates: start: 20070318, end: 20070323
  4. ZIENAM [Suspect]
     Dosage: UNK
     Route: 042
     Dates: start: 20070319, end: 20070326

REACTIONS (1)
  - HEPATITIS [None]
